FAERS Safety Report 5778888-1 (Version None)
Quarter: 2008Q2

REPORT INFORMATION
  Report Type: 
  Country: None (occurrence: None)
  Receive Date: 20080611
  Receipt Date: 20070723
  Transmission Date: 20081010
  Serious: Yes (Life-Threatening)
  Sender: FDA-Public Use
  Company Number: WAES 0707USA03841

PATIENT
  Age: 64 Year
  Sex: Male

DRUGS (2)
  1. COSOPT [Suspect]
     Indication: GLAUCOMA
     Dosage: BID/OPHT
     Route: 047
     Dates: start: 20040712, end: 20070419
  2. TRAVATAN [Concomitant]

REACTIONS (1)
  - DRUG HYPERSENSITIVITY [None]
